FAERS Safety Report 6528505-8 (Version None)
Quarter: 2009Q4

REPORT INFORMATION
  Report Type: 
  Country: None (occurrence: None)
  Receive Date: 20091222
  Receipt Date: 20090901
  Transmission Date: 20100525
  Serious: No
  Sender: FDA-Public Use
  Company Number: ALL1-2009-02542

PATIENT
  Age: 47 Year
  Sex: Female
  Weight: 77.1 kg

DRUGS (6)
  1. VYVANSE [Suspect]
     Indication: ATTENTION DEFICIT/HYPERACTIVITY DISORDER
     Dosage: 20; MG 1X/DAY:QD, ORAL,30 MG 1X/DAY:QD, ORAL
     Route: 048
     Dates: start: 20080301, end: 20080301
  2. VYVANSE [Suspect]
     Indication: ATTENTION DEFICIT/HYPERACTIVITY DISORDER
     Dosage: 20; MG 1X/DAY:QD, ORAL,30 MG 1X/DAY:QD, ORAL
     Route: 048
     Dates: start: 20080301, end: 20081201
  3. VYVANSE [Suspect]
     Indication: ATTENTION DEFICIT/HYPERACTIVITY DISORDER
     Dosage: 20; MG 1X/DAY:QD, ORAL,30 MG 1X/DAY:QD, ORAL
     Route: 048
     Dates: start: 20090301, end: 20090301
  4. PROZAC [Concomitant]
  5. DEPAKOTE [Concomitant]
  6. SEROQUEL [Concomitant]

REACTIONS (4)
  - ABDOMINAL DISCOMFORT [None]
  - AGITATION [None]
  - DRUG INEFFECTIVE [None]
  - FORMICATION [None]
